FAERS Safety Report 9815779 (Version 2)
Quarter: 2014Q1

REPORT INFORMATION
  Report Type: Other
  Country: DK (occurrence: ES)
  Receive Date: 20140114
  Receipt Date: 20140122
  Transmission Date: 20141002
  Serious: Yes (Hospitalization)
  Sender: FDA-Public Use
  Company Number: ES-FRI-1000052811

PATIENT
  Age: 81 Year
  Sex: Female

DRUGS (9)
  1. ESCITALOPRAM [Suspect]
     Indication: DEPRESSION
  2. ETORICOXIB [Suspect]
     Indication: BACK PAIN
  3. TRAMADOL [Suspect]
     Indication: BACK PAIN
  4. ACETAMYPHEN+TRAMADOL [Suspect]
     Indication: BACK PAIN
  5. OMEPRAZOLE [Concomitant]
     Indication: PROPHYLAXIS AGAINST GASTROINTESTINAL ULCER
  6. ATORVASTATIN [Concomitant]
     Indication: DYSLIPIDAEMIA
  7. MONTELUKAST [Concomitant]
     Indication: ASTHMA
  8. SALBUTAMOL [Concomitant]
     Indication: ASTHMA
  9. DEFLAZACORT [Concomitant]
     Indication: ASTHMA

REACTIONS (3)
  - Aphasia [Unknown]
  - Hemianopia [Unknown]
  - Drug interaction [Unknown]
